FAERS Safety Report 17344601 (Version 1)
Quarter: 2020Q1

REPORT INFORMATION
  Report Type: Spontaneous
  Country: US (occurrence: US)
  Receive Date: 20200129
  Receipt Date: 20200129
  Transmission Date: 20200409
  Serious: No
  Sender: FDA-Public Use
  Company Number: US-ALLERGAN-1942487US

PATIENT
  Sex: Female

DRUGS (1)
  1. BOTOX COSMETIC [Suspect]
     Active Substance: ONABOTULINUMTOXINA
     Indication: SKIN WRINKLING
     Dosage: UNK, SINGLE
     Dates: start: 20191016, end: 20191016

REACTIONS (5)
  - Urticaria [Not Recovered/Not Resolved]
  - Pain [Recovered/Resolved]
  - Hypersensitivity [Unknown]
  - Swelling face [Recovering/Resolving]
  - Off label use [Unknown]
